FAERS Safety Report 4514905-4 (Version None)
Quarter: 2004Q4

REPORT INFORMATION
  Report Type: 
  Country: None (occurrence: None)
  Receive Date: 20041129
  Receipt Date: 20041129
  Transmission Date: 20050328
  Serious: Yes (Hospitalization)
  Sender: FDA-Public Use
  Company Number: None

PATIENT
  Sex: Male
  Weight: 85.7298 kg

DRUGS (7)
  1. CISPLATIN [Suspect]
     Indication: LIP AND/OR ORAL CAVITY CANCER
     Dosage: 200MG  Q 3 WEEKS INTRAVENOUS
     Route: 042
     Dates: start: 20041109, end: 20041109
  2. RADIATION THERAPY [Concomitant]
  3. INSULIN [Concomitant]
  4. SIMVASTATIN [Concomitant]
  5. METOPROLOL [Concomitant]
  6. LOSARTAN [Concomitant]
  7. METFORMIN HCL [Concomitant]

REACTIONS (3)
  - HYPERKALAEMIA [None]
  - MEDICATION ERROR [None]
  - RENAL FAILURE ACUTE [None]
